FAERS Safety Report 22163290 (Version 1)
Quarter: 2023Q2

REPORT INFORMATION
  Report Type: Spontaneous
  Country: US (occurrence: US)
  Receive Date: 20230401
  Receipt Date: 20230401
  Transmission Date: 20230722
  Serious: Yes (Other)
  Sender: FDA-Public Use
  Company Number: US-AUROBINDO-AUR-APL-2023-010886

PATIENT
  Age: 53 Year
  Sex: Female

DRUGS (7)
  1. RIZATRIPTAN [Suspect]
     Active Substance: RIZATRIPTAN
     Indication: Migraine
     Dosage: UNK
     Route: 065
  2. UBROGEPANT [Interacting]
     Active Substance: UBROGEPANT
     Indication: Migraine
     Dosage: 50 MILLIGRAM
     Route: 065
  3. UBROGEPANT [Interacting]
     Active Substance: UBROGEPANT
     Dosage: 25 MILLIGRAM
     Route: 065
  4. RIMEGEPANT [Interacting]
     Active Substance: RIMEGEPANT
     Indication: Migraine
     Dosage: UNK
     Route: 065
     Dates: start: 202111
  5. RIMEGEPANT [Interacting]
     Active Substance: RIMEGEPANT
     Dosage: UNK
     Route: 065
     Dates: start: 202202
  6. ONABOTULINUMTOXINA [Interacting]
     Active Substance: ONABOTULINUMTOXINA
     Indication: Migraine
     Dosage: UNK
     Route: 065
  7. NORTRIPTYLINE [Concomitant]
     Active Substance: NORTRIPTYLINE
     Indication: Migraine
     Dosage: 20 MILLIGRAM, ONCE A DAY (EVERY NIGHT AT BED TIME)
     Route: 065

REACTIONS (2)
  - Sedation [Unknown]
  - Drug ineffective [Unknown]
